FAERS Safety Report 7366131-1 (Version None)
Quarter: 2011Q1

REPORT INFORMATION
  Report Type: 
  Country: None (occurrence: None)
  Receive Date: 20110322
  Receipt Date: 20110308
  Transmission Date: 20110831
  Serious: Yes (Hospitalization)
  Sender: FDA-Public Use
  Company Number: US-JNJFOC-20081207154

PATIENT
  Sex: Female
  Weight: 25 kg

DRUGS (6)
  1. METHOTREXATE [Concomitant]
  2. PREDNISONE [Concomitant]
  3. REMICADE [Suspect]
     Indication: CROHN'S DISEASE
     Route: 042
  4. REMICADE [Suspect]
     Route: 042
  5. REMICADE [Suspect]
     Route: 042
  6. CYMBALTA [Concomitant]
     Indication: ANXIETY

REACTIONS (2)
  - CROHN'S DISEASE [None]
  - VOMITING [None]
